FAERS Safety Report 9061668 (Version 2)
Quarter: 2012Q4

REPORT INFORMATION
  Report Type: Spontaneous
  Country: US (occurrence: None)
  Receive Date: 20120907
  Receipt Date: 20121114
  Transmission Date: 20130627
  Serious: Yes (Other)
  Sender: FDA-Public Use
  Company Number: US-CLINIGEN HEALTHCARE LIMITED-002994

PATIENT
  Age: 64 Year
  Sex: Female

DRUGS (4)
  1. FOSCAVIR (FOSCAVIR) [Suspect]
     Indication: HERPES SIMPLEX TYPE II
     Dosage: Intra-Vitreal
     Dates: start: 20110201, end: 20110222
  2. VALACICLOVIR (VALACICLOVIR) [Suspect]
     Indication: HERPES SIMPLEX TYPE II
     Route: 048
  3. BACTRIM (BACTRIM) [Concomitant]
  4. PREDNISONE (PREDNISONE) [Concomitant]

REACTIONS (7)
  - Visual acuity reduced [None]
  - Vitreous haemorrhage [None]
  - Condition aggravated [None]
  - Retinal detachment [None]
  - Off label use [None]
  - Retinal ischaemia [None]
  - Vitritis [None]
